FAERS Safety Report 13425298 (Version 1)
Quarter: 2017Q2

REPORT INFORMATION
  Report Type: Other
  Country: US (occurrence: US)
  Receive Date: 20170411
  Receipt Date: 20170411
  Transmission Date: 20170830
  Serious: Yes (Hospitalization, Other)
  Sender: FDA-Public Use
  Company Number: US-HETERO LABS LTD-1065252

PATIENT
  Age: 49 Year
  Sex: Female

DRUGS (1)
  1. DULOXETINE. [Suspect]
     Active Substance: DULOXETINE
     Indication: ANXIETY
     Route: 065

REACTIONS (5)
  - Dysphagia [Recovering/Resolving]
  - Respiratory distress [Recovering/Resolving]
  - Nystagmus [Recovering/Resolving]
  - Muscle spasms [Recovering/Resolving]
  - Muscle rigidity [Recovering/Resolving]
